FAERS Safety Report 6476432-7 (Version None)
Quarter: 2009Q4

REPORT INFORMATION
  Report Type: 
  Country: None (occurrence: None)
  Receive Date: 20091207
  Receipt Date: 20091130
  Transmission Date: 20100525
  Serious: Yes (Hospitalization)
  Sender: FDA-Public Use
  Company Number: US-BIOGENIDEC-2009BI039200

PATIENT
  Age: 51 Year
  Sex: Male
  Weight: 104 kg

DRUGS (2)
  1. TYSABRI [Suspect]
     Indication: MULTIPLE SCLEROSIS
     Route: 042
     Dates: start: 20090101
  2. MEDICATION NOS [Concomitant]
     Indication: HYPERTENSION

REACTIONS (5)
  - CORONARY ARTERY OCCLUSION [None]
  - ERYTHROPOIESIS ABNORMAL [None]
  - HYPERTENSION [None]
  - HYPOTENSION [None]
  - WHITE BLOOD CELL MORPHOLOGY ABNORMAL [None]
